FAERS Safety Report 8262731 (Version 2)
Quarter: 2013Q1

REPORT INFORMATION
  Report Type: Spontaneous
  Country: GB (occurrence: GB)
  Receive Date: 20111124
  Receipt Date: 20130319
  Transmission Date: 20140127
  Serious: Yes (Other)
  Sender: FDA-Public Use
  Company Number: GB-ROCHE-1011878

PATIENT
  Sex: Female

DRUGS (3)
  1. HERCEPTIN [Suspect]
     Indication: BREAST CANCER
     Route: 065
  2. CALCIUM [Concomitant]
     Route: 065
  3. LANSOPRAZOLE [Concomitant]
     Route: 065

REACTIONS (4)
  - Deafness transitory [Unknown]
  - Ear discomfort [Unknown]
  - Dizziness [Unknown]
  - Headache [Unknown]
